FAERS Safety Report 6900639-5 (Version None)
Quarter: 2010Q3

REPORT INFORMATION
  Report Type: 
  Country: None (occurrence: None)
  Receive Date: 20100803
  Receipt Date: 20100726
  Transmission Date: 20110219
  Serious: Yes (Hospitalization)
  Sender: FDA-Public Use
  Company Number: US-JNJFOC-20100708428

PATIENT
  Sex: Male
  Weight: 58.97 kg

DRUGS (24)
  1. SPORANOX [Suspect]
     Indication: LUNG DISORDER
     Route: 048
  2. ALLOPURINOL [Concomitant]
     Indication: URINARY TRACT DISORDER
     Route: 048
  3. ASCORBIC ACID [Concomitant]
     Indication: GENERAL PHYSICAL CONDITION
     Route: 048
  4. DOCUSATE SODIUM [Concomitant]
     Indication: GASTROINTESTINAL DISORDER
     Route: 048
  5. VITAMIN B [Concomitant]
     Indication: GENERAL PHYSICAL CONDITION
     Route: 048
  6. FENOFIBRATE [Concomitant]
     Indication: BLOOD TRIGLYCERIDES
     Route: 048
  7. FLUDROCORTISONE [Concomitant]
     Indication: BLOOD POTASSIUM
     Route: 048
  8. ADVAIR DISKUS 100/50 [Concomitant]
     Indication: LUNG DISORDER
     Dosage: 1 PUFFS
     Route: 055
  9. GABAPENTIN [Concomitant]
     Indication: NEUROPATHY PERIPHERAL
     Route: 048
  10. MAGNESIUM OXIDE [Concomitant]
     Indication: GENERAL PHYSICAL CONDITION
     Route: 048
  11. METOPROLOL [Concomitant]
     Indication: BLOOD PRESSURE
     Route: 048
  12. CELLCEPT [Concomitant]
     Indication: IMMUNOSUPPRESSANT DRUG THERAPY
     Route: 048
  13. PANTOPRAZOLE [Concomitant]
     Indication: GASTRIC DISORDER
     Route: 048
  14. OXYCODONE [Concomitant]
     Indication: PAIN
     Dosage: AS NEEDED
     Route: 048
  15. PANCRELIPASE [Concomitant]
     Indication: GASTROINTESTINAL DISORDER
     Route: 048
  16. PREDNISONE [Concomitant]
     Indication: PRODUCT USED FOR UNKNOWN INDICATION
     Route: 048
  17. SUCRALFATE [Concomitant]
     Indication: GASTRIC DISORDER
     Route: 048
  18. BACTRIM [Concomitant]
     Indication: PROPHYLAXIS
     Route: 048
  19. PROGRAF [Concomitant]
     Indication: IMMUNOSUPPRESSANT DRUG THERAPY
     Route: 048
  20. TOBRAMYCIN [Concomitant]
     Indication: LUNG DISORDER
     Route: 055
  21. URSODIOL [Concomitant]
     Indication: GALLBLADDER DISORDER
     Route: 048
  22. TOCOPHEROL CONCENTRATE CAP [Concomitant]
     Indication: GENERAL PHYSICAL CONDITION
     Route: 048
  23. LANTUS [Concomitant]
     Indication: DIABETES MELLITUS
     Dosage: 20 UNITS
     Route: 058
  24. HUMALOG [Concomitant]
     Indication: DIABETES MELLITUS
     Dosage: AS NEEDED FOR SLIDING SCALE COVERAGE
     Route: 058

REACTIONS (4)
  - DEHYDRATION [None]
  - DISTAL INTESTINAL OBSTRUCTION SYNDROME [None]
  - INTUSSUSCEPTION [None]
  - SMALL INTESTINAL OBSTRUCTION [None]
